FAERS Safety Report 10011791 (Version 2)
Quarter: 2014Q2

REPORT INFORMATION
  Report Type: Report from Study
  Country: US (occurrence: US)
  Receive Date: 20140314
  Receipt Date: 20140417
  Transmission Date: 20141212
  Serious: Yes (Death, Other)
  Sender: FDA-Public Use
  Company Number: US-BRISTOL-MYERS SQUIBB COMPANY-20417937

PATIENT
  Sex: 0

DRUGS (14)
  1. ARIPIPRAZOLE [Suspect]
     Dates: start: 20140211, end: 20140226
  2. ACETAMINOPHEN [Concomitant]
  3. MAGNESIUM OXIDE [Concomitant]
  4. IPRATROPIUM + ALBUTEROL [Concomitant]
  5. CARVEDILOL [Concomitant]
  6. CLONIDINE [Concomitant]
  7. FINASTERIDE [Concomitant]
  8. SIMVASTATIN [Concomitant]
  9. ESOMEPRAZOLE [Concomitant]
  10. BUDESONIDE [Concomitant]
  11. LISINOPRIL [Concomitant]
  12. MELOXICAM [Concomitant]
  13. ZOLPIDEM [Concomitant]
  14. CIPROFLOXACIN [Concomitant]

REACTIONS (2)
  - Chronic obstructive pulmonary disease [Fatal]
  - Pneumonia streptococcal [Unknown]
